FAERS Safety Report 9879519 (Version 1)
Quarter: 2014Q1

REPORT INFORMATION
  Report Type: Spontaneous
  Country: GB (occurrence: GB)
  Receive Date: 20140206
  Receipt Date: 20140206
  Transmission Date: 20141002
  Serious: Yes (Hospitalization)
  Sender: FDA-Public Use
  Company Number: GB-B.I. PHARMACEUTICALS,INC./RIDGEFIELD-2014-BI-04599UK

PATIENT
  Age: 81 Year
  Sex: Male

DRUGS (11)
  1. PRADAXA [Suspect]
     Indication: ATRIAL FIBRILLATION
     Dosage: 220 MG
     Route: 048
  2. ASPIRIN [Concomitant]
     Route: 048
     Dates: end: 20131113
  3. BISOPROLOL [Concomitant]
     Indication: MYOCARDIAL INFARCTION
     Dosage: 7.5 MG
     Route: 048
  4. CALCICHEW D3 [Concomitant]
     Route: 048
  5. FLOMAX MR [Concomitant]
     Route: 048
  6. GLYCERYL TRINITRATE [Concomitant]
     Indication: ANGINA PECTORIS
     Route: 060
  7. ISOSORBIDE MONONITRATE [Concomitant]
     Route: 048
  8. LIPITOR [Concomitant]
     Route: 048
  9. OMEPRAZOLE [Concomitant]
     Route: 048
  10. PARACETAMOL [Concomitant]
     Indication: PAIN
     Dosage: 1 G
     Route: 042
  11. RAMIPRIL [Concomitant]
     Route: 048

REACTIONS (4)
  - Diarrhoea haemorrhagic [Unknown]
  - Rectal haemorrhage [Unknown]
  - Dyspnoea [Unknown]
  - Diarrhoea [Unknown]
